FAERS Safety Report 9458387 (Version 3)
Quarter: 2013Q3

REPORT INFORMATION
  Report Type: Spontaneous
  Country: DK (occurrence: DK)
  Receive Date: 20130814
  Receipt Date: 20130918
  Transmission Date: 20140515
  Serious: No
  Sender: FDA-Public Use
  Company Number: DK-PFIZER INC-2013231228

PATIENT
  Age: 31 Year
  Sex: Female

DRUGS (5)
  1. EPIRUBICIN HCL [Suspect]
     Indication: BREAST CANCER
     Dosage: UNK, X 3
  2. HERCEPTIN [Suspect]
     Indication: BREAST CANCER
     Dosage: UNK
  3. SENDOXAN [Suspect]
     Indication: BREAST CANCER
     Dosage: UNK, X 3
  4. TAXOTERE [Suspect]
     Indication: BREAST CANCER
     Dosage: UNK, X 3
  5. TAMOXIFEN [Suspect]
     Indication: BREAST CANCER
     Dosage: UNK

REACTIONS (2)
  - Disease progression [Unknown]
  - Breast cancer [Unknown]
